FAERS Safety Report 10387679 (Version 1)
Quarter: 2014Q3

REPORT INFORMATION
  Report Type: Spontaneous
  Country: GB (occurrence: GB)
  Receive Date: 20140815
  Receipt Date: 20140815
  Transmission Date: 20150326
  Serious: Yes (Other)
  Sender: FDA-Public Use
  Company Number: GB-ASTRAZENECA-2014SE57346

PATIENT
  Sex: Male

DRUGS (8)
  1. ALLOPURINOL. [Concomitant]
     Active Substance: ALLOPURINOL
  2. LOSEC [Suspect]
     Active Substance: OMEPRAZOLE
     Route: 048
     Dates: start: 2007
  3. IRON [Concomitant]
     Active Substance: IRON
  4. METHOTREXATE [Concomitant]
     Active Substance: METHOTREXATE
  5. LOSEC [Suspect]
     Active Substance: OMEPRAZOLE
     Route: 048
  6. THYROXINE [Concomitant]
     Active Substance: LEVOTHYROXINE
  7. CALCIUM [Concomitant]
     Active Substance: CALCIUM
  8. SIMVASTATIN. [Concomitant]
     Active Substance: SIMVASTATIN

REACTIONS (1)
  - Dysphagia [Unknown]
